FAERS Safety Report 10173491 (Version 1)
Quarter: 2014Q2

REPORT INFORMATION
  Report Type: Spontaneous
  Country: DE (occurrence: DE)
  Receive Date: 20140515
  Receipt Date: 20140515
  Transmission Date: 20141212
  Serious: Yes (Other)
  Sender: FDA-Public Use
  Company Number: DE-TEVA-480630GER

PATIENT
  Age: 41 Year
  Sex: Male

DRUGS (4)
  1. METFORMIN [Suspect]
     Indication: TYPE 2 DIABETES MELLITUS
     Dosage: 1500 MILLIGRAM DAILY;
     Route: 065
  2. INSULIN GLARGINE [Concomitant]
     Indication: TYPE 2 DIABETES MELLITUS
     Route: 065
  3. PREDNISOLONE [Concomitant]
     Indication: DEAFNESS NEUROSENSORY
     Dosage: TAPERING DOSE STARTING FROM 250MG Q.I.D
     Route: 065
  4. THIOCTIC ACID [Concomitant]
     Indication: DEAFNESS NEUROSENSORY
     Route: 065

REACTIONS (3)
  - Drug-induced liver injury [Recovered/Resolved]
  - Eosinophilia [Recovering/Resolving]
  - Rash [Unknown]
